FAERS Safety Report 15709486 (Version 1)
Quarter: 2018Q4

REPORT INFORMATION
  Report Type: Spontaneous
  Country: SE (occurrence: SE)
  Receive Date: 20181211
  Receipt Date: 20181211
  Transmission Date: 20190205
  Serious: Yes (Other)
  Sender: FDA-Public Use
  Company Number: SE-PFIZER INC-2018503343

PATIENT
  Age: 67 Year
  Sex: Female

DRUGS (15)
  1. LINAGLIPTIN/METFORMIN [Concomitant]
  2. SIMVASTATIN SANDOZ [Concomitant]
     Active Substance: SIMVASTATIN
  3. GABAPENTIN. [Suspect]
     Active Substance: GABAPENTIN
     Indication: PAIN
     Dosage: 600 MG, DAILY
     Route: 048
     Dates: start: 20140104, end: 20140107
  4. MIANSERIN MYLAN [Concomitant]
     Active Substance: MIANSERIN
  5. DICLOFENAC [Concomitant]
     Active Substance: DICLOFENAC
  6. PLENDIL [Concomitant]
     Active Substance: FELODIPINE
  7. ZOLPIDEM [Concomitant]
     Active Substance: ZOLPIDEM\ZOLPIDEM TARTRATE
  8. METOPROLOL SANDOZ [Concomitant]
     Active Substance: METOPROLOL
  9. DOLCONTIN [MORPHINE SULFATE] [Concomitant]
  10. LOSARTAN/HYDROCHLOROTHIAZIDE KRKA [Concomitant]
  11. LEVAXIN [Concomitant]
     Active Substance: LEVOTHYROXINE SODIUM
  12. SOBRIL [Concomitant]
     Active Substance: OXAZEPAM
  13. CYMBALTA [Concomitant]
     Active Substance: DULOXETINE HYDROCHLORIDE
  14. MORPHINE [Concomitant]
     Active Substance: MORPHINE
  15. INSULATARD [INSULIN HUMAN INJECTION, ISOPHANE] [Concomitant]

REACTIONS (1)
  - Communication disorder [Recovered/Resolved]

NARRATIVE: CASE EVENT DATE: 20140107
